FAERS Safety Report 4805462-3 (Version None)
Quarter: 2005Q4

REPORT INFORMATION
  Report Type: 
  Country: None (occurrence: None)
  Receive Date: 20051018
  Receipt Date: 20051005
  Transmission Date: 20060501
  Serious: Yes (Hospitalization)
  Sender: FDA-Public Use
  Company Number: 2005132638

PATIENT
  Age: 88 Year
  Sex: Male

DRUGS (4)
  1. XALATAN [Suspect]
     Indication: GLAUCOMA
     Dosage: OPHTHALMIC
     Route: 047
  2. BETA BLOCKING AGENTS (BETA BLOCKING AGENTS) [Suspect]
     Indication: GLAUCOMA
     Dates: start: 19950101
  3. PLAVIX [Concomitant]
  4. PROSTAGLANDINS (PROSTAGLANDINS) [Concomitant]

REACTIONS (1)
  - BRADYCARDIA [None]
